FAERS Safety Report 8996255 (Version 6)
Quarter: 2013Q2

REPORT INFORMATION
  Report Type: Spontaneous
  Country: US (occurrence: US)
  Receive Date: 20130103
  Receipt Date: 20130507
  Transmission Date: 20140414
  Serious: Yes (Hospitalization)
  Sender: FDA-Public Use
  Company Number: US-GILEAD-2013-0067236

PATIENT
  Sex: Male

DRUGS (14)
  1. LETAIRIS [Suspect]
     Indication: PULMONARY ARTERIAL HYPERTENSION
     Dosage: 5 MG, QD
     Dates: start: 20120904
  2. OXYGEN [Concomitant]
  3. ARICEPT [Concomitant]
  4. AUGMENTIN                          /00756801/ [Concomitant]
  5. NAMENDA [Concomitant]
  6. MESTINON [Concomitant]
  7. CORDARONE [Concomitant]
  8. SINEMET [Concomitant]
  9. LEXAPRO [Concomitant]
  10. TOPROL [Concomitant]
  11. REMERON [Concomitant]
  12. PRAVACHOL [Concomitant]
  13. COUMADIN                           /00014802/ [Concomitant]
  14. ASPIRIN (E.C.) [Concomitant]

REACTIONS (4)
  - Loss of consciousness [Unknown]
  - Syncope [Unknown]
  - Dementia [Unknown]
  - Dizziness [Unknown]
